FAERS Safety Report 23416625 (Version 2)
Quarter: 2024Q1

REPORT INFORMATION
  Report Type: Spontaneous
  Country: FR (occurrence: FR)
  Receive Date: 20240118
  Receipt Date: 20240211
  Transmission Date: 20240410
  Serious: Yes (Death, Hospitalization, Other)
  Sender: FDA-Public Use
  Company Number: FR-ROCHE-3427548

PATIENT
  Age: 77 Year
  Sex: Male
  Weight: 105 kg

DRUGS (50)
  1. CYCLOPHOSPHAMIDE [Suspect]
     Active Substance: CYCLOPHOSPHAMIDE
     Indication: Diffuse large B-cell lymphoma
     Route: 042
  2. DOXORUBICIN [Suspect]
     Active Substance: DOXORUBICIN
     Indication: Diffuse large B-cell lymphoma
     Route: 042
  3. EPCORITAMAB [Suspect]
     Active Substance: EPCORITAMAB
     Indication: Diffuse large B-cell lymphoma
     Route: 058
  4. PREDNISONE [Suspect]
     Active Substance: PREDNISONE
     Indication: Diffuse large B-cell lymphoma
     Route: 048
  5. RITUXIMAB [Suspect]
     Active Substance: RITUXIMAB
     Indication: Diffuse large B-cell lymphoma
     Route: 042
  6. VINCRISTINE [Suspect]
     Active Substance: VINCRISTINE
     Indication: Diffuse large B-cell lymphoma
     Route: 042
  7. MORPHINE SULFATE [Concomitant]
     Active Substance: MORPHINE SULFATE
     Indication: Product used for unknown indication
     Dosage: 30.000MG
     Route: 065
     Dates: start: 20230823
  8. ALLOPURINOL [Concomitant]
     Active Substance: ALLOPURINOL
     Indication: Hyperuricaemia
     Dosage: 100.000MG
     Route: 065
     Dates: start: 20230809
  9. AMIKACIN [Concomitant]
     Active Substance: AMIKACIN
     Indication: Product used for unknown indication
     Dosage: 150 MG
     Route: 065
     Dates: start: 20230809, end: 20230814
  10. AMIODARONE [Concomitant]
     Active Substance: AMIODARONE
     Indication: Arrhythmia
     Dosage: 200.000MG
     Route: 065
     Dates: end: 20230810
  11. AMITRIPTYLINE [Concomitant]
     Active Substance: AMITRIPTYLINE
     Indication: Insomnia
     Dosage: 5 DROPS
     Route: 065
     Dates: start: 20230809, end: 20230814
  12. AMITRIPTYLINE [Concomitant]
     Active Substance: AMITRIPTYLINE
     Dosage: 5 DROPS
     Route: 065
     Dates: start: 20230809, end: 20230814
  13. AMITRIPTYLINE [Concomitant]
     Active Substance: AMITRIPTYLINE
     Dosage: 5 DROPS, EVERY 1 DAYS ROUTE OF ADMIN (FREE TEXT): UNKNOWN ROUTE
     Route: 065
     Dates: start: 20230809, end: 20230814
  14. APIXABAN [Concomitant]
     Active Substance: APIXABAN
     Indication: Arrhythmia
     Dosage: 5.000MG
     Route: 065
  15. ATORVASTATIN [Concomitant]
     Active Substance: ATORVASTATIN
     Indication: Dyslipidaemia
     Dosage: 10.000MG
     Route: 065
     Dates: start: 20230809
  16. CANDESARTAN [Concomitant]
     Active Substance: CANDESARTAN
     Indication: Hypertension
     Dosage: 16.000MG
     Route: 065
  17. CLOXACILLIN [Concomitant]
     Active Substance: CLOXACILLIN
     Indication: Febrile bone marrow aplasia
     Route: 065
     Dates: start: 20230825, end: 20230828
  18. DAPTOMYCIN [Concomitant]
     Active Substance: DAPTOMYCIN
     Dosage: 1000 MG, EVERY 1 DAYS ROUTE OF ADMIN (FREE TEXT): UNKNOWN ROUTE
     Route: 065
     Dates: start: 20230824, end: 20230824
  19. DAPTOMYCIN [Concomitant]
     Active Substance: DAPTOMYCIN
     Indication: Febrile bone marrow aplasia
     Route: 065
     Dates: start: 20230824, end: 20230824
  20. DAPTOMYCIN [Concomitant]
     Active Substance: DAPTOMYCIN
     Route: 065
     Dates: start: 20230824, end: 20230824
  21. DAPTOMYCIN [Concomitant]
     Active Substance: DAPTOMYCIN
     Indication: Product used for unknown indication
  22. DEXAMETHASONE [Concomitant]
     Active Substance: DEXAMETHASONE
     Indication: Chills
     Dosage: 40.000MG
     Route: 065
     Dates: start: 20230824, end: 20230824
  23. DEXAMETHASONE [Concomitant]
     Active Substance: DEXAMETHASONE
     Indication: Wheezing
  24. FILGRASTIM [Concomitant]
     Active Substance: FILGRASTIM
     Indication: Aplasia
     Route: 065
     Dates: start: 20230821
  25. GABAPENTIN [Concomitant]
     Active Substance: GABAPENTIN
     Indication: Product used for unknown indication
     Dosage: 100.000MG
     Route: 065
     Dates: start: 20230823
  26. HYDROCHLOROTHIAZIDE [Concomitant]
     Active Substance: HYDROCHLOROTHIAZIDE
     Indication: Hypertension
     Dosage: 12.500MG QD
     Route: 065
  27. IRON [Concomitant]
     Active Substance: IRON
     Indication: Anaemia prophylaxis
     Dosage: 66.000MG
     Route: 065
     Dates: start: 20230809
  28. IRON [Concomitant]
     Active Substance: IRON
     Dosage: 66 MG, 2/DAYS ROUTE OF ADMIN (FREE TEXT): UNKNOWN ROUTE
     Route: 065
     Dates: start: 20230809
  29. KARDEGIC [Concomitant]
     Active Substance: ASPIRIN DL-LYSINE
     Indication: Peripheral arterial occlusive disease
     Dosage: 75.000MG
     Route: 065
     Dates: end: 20230810
  30. LIDOCAINE [Concomitant]
     Active Substance: LIDOCAINE
     Indication: Product used for unknown indication
     Route: 065
     Dates: start: 20230817
  31. LIDOCAINE [Concomitant]
     Active Substance: LIDOCAINE
     Route: 065
     Dates: start: 20230810, end: 20230813
  32. POLYETHYLENE GLYCOLS [Concomitant]
     Active Substance: POLYETHYLENE GLYCOLS
     Indication: Constipation
     Route: 065
     Dates: start: 20230814
  33. METHYLPREDNISOLONE [Concomitant]
     Active Substance: METHYLPREDNISOLONE
     Indication: Product used for unknown indication
     Dosage: 100.000MG
     Route: 065
     Dates: end: 20230813
  34. NEBIVOLOL [Concomitant]
     Active Substance: NEBIVOLOL
     Indication: Hypertension
     Dosage: 2.500MG QD
     Route: 065
  35. NEBIVOLOL [Concomitant]
     Active Substance: NEBIVOLOL
     Dosage: 2.5 MG, EVERY 1 DAYS ROUTE OF ADMIN (FREE TEXT): UNKNOWN ROUTE
     Route: 065
  36. NEFOPAM [Concomitant]
     Active Substance: NEFOPAM
     Indication: Product used for unknown indication
     Dosage: 20.000MG
     Route: 065
     Dates: start: 20230812
  37. NEFOPAM [Concomitant]
     Active Substance: NEFOPAM
     Indication: Product used for unknown indication
     Dosage: 20 MG, AS NECESSARY ROUTE OF ADMIN (FREE TEXT): UNKNOWN ROUTE
     Route: 065
     Dates: start: 20230812
  38. PANTOPRAZOLE [Concomitant]
     Active Substance: PANTOPRAZOLE
     Indication: Gastrointestinal disorder prophylaxis
     Dosage: 20.000MG
     Route: 065
  39. PHOSPHORUS [Concomitant]
     Active Substance: PHOSPHORUS
     Indication: Hypophosphataemia
     Route: 065
     Dates: start: 20230818, end: 20230830
  40. PIPERACILLIN SODIUM [Concomitant]
     Active Substance: PIPERACILLIN SODIUM
     Indication: Febrile bone marrow aplasia
     Route: 065
     Dates: start: 20230824, end: 20230825
  41. RILMENIDINE MERCK [Concomitant]
     Indication: Hypertension
     Dosage: 1.000MG QD
     Route: 065
  42. SKENAN [Concomitant]
     Active Substance: MORPHINE SULFATE
     Indication: Hypertension
     Route: 042
  43. TAZOBACTAM [Concomitant]
     Active Substance: TAZOBACTAM
     Dosage: 0.5 G, EVERY 6 HOURS ROUTE OF ADMIN (FREE TEXT): UNKNOWN ROUTE
     Route: 065
     Dates: start: 20230824, end: 20230825
  44. TAZOBACTAM [Concomitant]
     Active Substance: TAZOBACTAM
     Indication: Febrile bone marrow aplasia
     Route: 065
     Dates: start: 20230824, end: 20230825
  45. TAZOBACTAM [Concomitant]
     Active Substance: TAZOBACTAM
     Route: 065
     Dates: start: 20230824, end: 20230825
  46. TERBUTALINE [Concomitant]
     Active Substance: TERBUTALINE
     Indication: Hypoxia
     Dosage: 5.000MG
     Route: 065
     Dates: start: 20230824, end: 20230824
  47. TERBUTALINE [Concomitant]
     Active Substance: TERBUTALINE
     Dosage: 5 MG, TOTAL ROUTE OF ADMIN (FREE TEXT): UNKNOWN ROUTE
     Route: 065
     Dates: start: 20230824, end: 20230824
  48. TRAMADOL [Concomitant]
     Active Substance: TRAMADOL\TRAMADOL HYDROCHLORIDE
     Dosage: 100.000MG
     Route: 065
     Dates: start: 20230814
  49. TRAMADOL [Concomitant]
     Active Substance: TRAMADOL\TRAMADOL HYDROCHLORIDE
     Indication: Product used for unknown indication
     Dosage: 150.000MG
     Route: 065
     Dates: start: 20230809, end: 20230814
  50. ZOPICLONE [Concomitant]
     Active Substance: ZOPICLONE
     Indication: Insomnia
     Dosage: 3.750MG QD
     Route: 065

REACTIONS (4)
  - Pneumonia [Fatal]
  - Cytokine release syndrome [Not Recovered/Not Resolved]
  - Escherichia infection [Not Recovered/Not Resolved]
  - Staphylococcal infection [Recovered/Resolved]

NARRATIVE: CASE EVENT DATE: 20230824
